FAERS Safety Report 12032120 (Version 2)
Quarter: 2016Q1

REPORT INFORMATION
  Report Type: Report from Study
  Country: US (occurrence: US)
  Receive Date: 20160207
  Receipt Date: 20160219
  Transmission Date: 20160526
  Serious: Yes (Hospitalization, Other)
  Sender: FDA-Public Use
  Company Number: US-ABBVIE-15K-163-1511670-00

PATIENT
  Age: 47 Year
  Sex: Female
  Weight: 69.01 kg

DRUGS (5)
  1. PHENERGAN [Concomitant]
     Active Substance: PROMETHAZINE HYDROCHLORIDE
     Indication: PRODUCT USED FOR UNKNOWN INDICATION
  2. SEROQUEL [Concomitant]
     Active Substance: QUETIAPINE FUMARATE
     Indication: PRODUCT USED FOR UNKNOWN INDICATION
  3. HUMIRA [Suspect]
     Active Substance: ADALIMUMAB
     Indication: CROHN^S DISEASE
     Route: 058
     Dates: start: 20050320
  4. FENTANYL. [Concomitant]
     Active Substance: FENTANYL
     Indication: PRODUCT USED FOR UNKNOWN INDICATION
  5. FLONASE [Concomitant]
     Active Substance: FLUTICASONE PROPIONATE
     Indication: PRODUCT USED FOR UNKNOWN INDICATION

REACTIONS (19)
  - Post procedural discharge [Unknown]
  - Post procedural complication [Unknown]
  - Hiatus hernia [Unknown]
  - Crohn^s disease [Recovering/Resolving]
  - Anaemia [Recovered/Resolved]
  - Anastomotic haemorrhage [Unknown]
  - Hypovolaemia [Recovered/Resolved]
  - Atelectasis [Unknown]
  - Ileus [Recovered/Resolved]
  - Hypertension [Unknown]
  - Seroma [Unknown]
  - Anxiety [Unknown]
  - Intestinal scarring [Unknown]
  - Faeces discoloured [Recovered/Resolved]
  - Hyponatraemia [Recovered/Resolved]
  - Postoperative abscess [Unknown]
  - Benign hepatic neoplasm [Unknown]
  - Pain [Unknown]
  - Depression [Unknown]

NARRATIVE: CASE EVENT DATE: 20151017
